FAERS Safety Report 22657153 (Version 2)
Quarter: 2025Q2

REPORT INFORMATION
  Report Type: Spontaneous
  Country: AU (occurrence: AU)
  Receive Date: 20230630
  Receipt Date: 20250624
  Transmission Date: 20250717
  Serious: Yes (Death, Other)
  Sender: ORGANON
  Company Number: AU-ORGANON-O2306AUS003367

PATIENT
  Age: 87 Year
  Sex: Female

DRUGS (13)
  1. MIRTAZAPINE [Suspect]
     Active Substance: MIRTAZAPINE
  2. DOCUSATE SODIUM [Suspect]
     Active Substance: DOCUSATE SODIUM
  3. HYDROXYCHLOROQUINE SULFATE [Suspect]
     Active Substance: HYDROXYCHLOROQUINE SULFATE
  4. LEVOTHYROXINE SODIUM [Suspect]
     Active Substance: LEVOTHYROXINE SODIUM
  5. ESTRIOL [Suspect]
     Active Substance: ESTRIOL
  6. RISEDRONATE SODIUM [Suspect]
     Active Substance: RISEDRONATE SODIUM
  7. SENNA [Suspect]
     Active Substance: SENNOSIDES
  8. PREGABALIN [Suspect]
     Active Substance: PREGABALIN
  9. NEXIUM I.V. [Concomitant]
     Active Substance: ESOMEPRAZOLE SODIUM
  10. ALLOPURINOL [Concomitant]
     Active Substance: ALLOPURINOL
  11. AMLODIPINE [Concomitant]
     Active Substance: AMLODIPINE BESYLATE
  12. ASPIRIN [Concomitant]
     Active Substance: ASPIRIN
  13. ACETAMINOPHEN [Concomitant]
     Active Substance: ACETAMINOPHEN

REACTIONS (11)
  - Somnolence [Fatal]
  - Sepsis [Unknown]
  - Pneumonia aspiration [Unknown]
  - Breath sounds abnormal [Unknown]
  - Fatigue [Unknown]
  - Hypophagia [Unknown]
  - Lethargy [Unknown]
  - Pallor [Unknown]
  - Pyrexia [Unknown]
  - Sedation [Unknown]
  - Wrong patient received product [Unknown]
